FAERS Safety Report 9402875 (Version 1)
Quarter: 2013Q3

REPORT INFORMATION
  Report Type: Report from Study
  Country: US (occurrence: US)
  Receive Date: 20130716
  Receipt Date: 20130716
  Transmission Date: 20140515
  Serious: Yes (Hospitalization)
  Sender: FDA-Public Use
  Company Number: US-ABBOTT-13P-163-1116412-00

PATIENT
  Age: 29 Year
  Sex: Male

DRUGS (2)
  1. HUMIRA [Suspect]
     Indication: CROHN^S DISEASE
     Dates: start: 201109
  2. HUMIRA [Suspect]

REACTIONS (5)
  - Enteritis [Unknown]
  - Haematochezia [Unknown]
  - Intestinal obstruction [Unknown]
  - Gastrointestinal pain [Unknown]
  - Crohn^s disease [Unknown]
